FAERS Safety Report 12643757 (Version 3)
Quarter: 2016Q3

REPORT INFORMATION
  Report Type: Spontaneous
  Country: CN (occurrence: CN)
  Receive Date: 20160811
  Receipt Date: 20160909
  Transmission Date: 20161109
  Serious: Yes (Hospitalization)
  Sender: FDA-Public Use
  Company Number: CN-ASTRAZENECA-2016SE85059

PATIENT
  Age: 43 Year
  Sex: Male

DRUGS (5)
  1. KIND OF DOMESTIC CHINESE PATENT MEDICINE [Concomitant]
  2. CRESTOR [Suspect]
     Active Substance: ROSUVASTATIN CALCIUM
     Route: 048
  3. CRESTOR [Suspect]
     Active Substance: ROSUVASTATIN CALCIUM
     Route: 048
     Dates: end: 201608
  4. NORVASC [Concomitant]
     Active Substance: AMLODIPINE BESYLATE
  5. ASPIRIN. [Suspect]
     Active Substance: ASPIRIN
     Route: 048

REACTIONS (1)
  - Arteriosclerosis [Recovering/Resolving]
